FAERS Safety Report 11230987 (Version 1)
Quarter: 2015Q3

REPORT INFORMATION
  Report Type: Spontaneous
  Country: US (occurrence: US)
  Receive Date: 20150701
  Receipt Date: 20150701
  Transmission Date: 20151125
  Serious: No
  Sender: FDA-Public Use
  Company Number: US-BAYER-2015-368049

PATIENT
  Age: 24 Year
  Sex: Male
  Weight: 109 kg

DRUGS (2)
  1. ATRIPLA [Concomitant]
     Active Substance: EFAVIRENZ\EMTRICITABINE\TENOFOVIR DISOPROXIL FUMARATE
  2. ALEVE [Suspect]
     Active Substance: NAPROXEN SODIUM
     Indication: ARTHRALGIA
     Dosage: 2 DF, EVERY 3 TO 4 HOURS (18 DF IN A DAY)
     Route: 048
     Dates: start: 20150627, end: 20150627

REACTIONS (1)
  - Product use issue [None]

NARRATIVE: CASE EVENT DATE: 20150627
